FAERS Safety Report 19934726 (Version 3)
Quarter: 2021Q4

REPORT INFORMATION
  Report Type: Report from Study
  Country: US (occurrence: US)
  Receive Date: 20211008
  Receipt Date: 20211014
  Transmission Date: 20220303
  Serious: Yes (Death, Hospitalization)
  Sender: FDA-Public Use
  Company Number: US-AMGEN-USACT2021137198

PATIENT
  Age: 57 Year
  Sex: Male
  Weight: 103.8 kg

DRUGS (9)
  1. AMG-510 [Suspect]
     Active Substance: AMG-510
     Indication: K-ras gene mutation
     Dosage: 960 MILLIGRAM
     Route: 048
     Dates: start: 20210714
  2. AMG-510 [Suspect]
     Active Substance: AMG-510
     Indication: Colorectal adenocarcinoma
  3. RMC-4630 [Suspect]
     Active Substance: RMC-4630
     Indication: K-ras gene mutation
     Dosage: 200 MILLIGRAM
     Route: 048
     Dates: start: 20210714
  4. RMC-4630 [Suspect]
     Active Substance: RMC-4630
     Indication: Colorectal adenocarcinoma
  5. HYDROCODONE [Concomitant]
     Active Substance: HYDROCODONE
     Dosage: 325 MICROGRAM
     Route: 048
     Dates: start: 20210721, end: 20210912
  6. GABAPENTIN [Concomitant]
     Active Substance: GABAPENTIN
     Dosage: 300 MILLIGRAM
     Route: 048
     Dates: start: 20210720, end: 20210912
  7. KEPPRA [Concomitant]
     Active Substance: LEVETIRACETAM
     Dosage: 750 MILLIGRAM
     Route: 048
     Dates: start: 20210720, end: 20210912
  8. ATIVAN [Concomitant]
     Active Substance: LORAZEPAM
     Dosage: 1 MILLIGRAM
     Route: 048
     Dates: start: 20201208, end: 20210912
  9. DEXAMETHASONE [Concomitant]
     Active Substance: DEXAMETHASONE
     Dosage: 4 MILLIGRAM
     Route: 048
     Dates: start: 20210720, end: 20210912

REACTIONS (1)
  - Hypoxia [Recovered/Resolved]

NARRATIVE: CASE EVENT DATE: 20210901
